FAERS Safety Report 21657372 (Version 1)
Quarter: 2022Q4

REPORT INFORMATION
  Report Type: Report from Study
  Country: FR (occurrence: FR)
  Receive Date: 20221129
  Receipt Date: 20221129
  Transmission Date: 20230113
  Serious: Yes (Hospitalization, Other)
  Sender: FDA-Public Use
  Company Number: FR-HALEON-FRCH2022EME033497

PATIENT
  Age: 71 Year
  Sex: Female

DRUGS (14)
  1. ZOPICLONE [Suspect]
     Active Substance: ZOPICLONE
     Indication: Product used for unknown indication
     Dosage: UNK
     Route: 065
     Dates: end: 2022
  2. ACETAMINOPHEN [Suspect]
     Active Substance: ACETAMINOPHEN
     Indication: Product used for unknown indication
     Dosage: UNK
     Route: 065
     Dates: start: 202207, end: 2022
  3. REGORAFENIB [Suspect]
     Active Substance: REGORAFENIB
     Indication: Neck mass
     Dosage: UNK
     Route: 065
     Dates: start: 202206, end: 2022
  4. REGORAFENIB [Suspect]
     Active Substance: REGORAFENIB
     Indication: Metastases to the mediastinum
  5. REGORAFENIB [Suspect]
     Active Substance: REGORAFENIB
     Indication: Gallbladder adenocarcinoma
  6. AVELUMAB [Suspect]
     Active Substance: AVELUMAB
     Indication: Metastases to the mediastinum
     Dosage: UNK
     Route: 065
     Dates: start: 202206, end: 2022
  7. AVELUMAB [Suspect]
     Active Substance: AVELUMAB
     Indication: Neck mass
  8. AVELUMAB [Suspect]
     Active Substance: AVELUMAB
     Indication: Gallbladder adenocarcinoma
  9. LORMETAZEPAM [Concomitant]
     Active Substance: LORMETAZEPAM
     Indication: Product used for unknown indication
     Dosage: UNK
     Route: 065
     Dates: start: 202207
  10. ALPRAZOLAM [Concomitant]
     Active Substance: ALPRAZOLAM
     Indication: Product used for unknown indication
     Dosage: UNK
     Route: 065
     Dates: start: 202208
  11. TRIMEBUTINE [Concomitant]
     Active Substance: TRIMEBUTINE
     Indication: Product used for unknown indication
     Dosage: UNK
     Route: 065
     Dates: start: 202207
  12. PHLOROGLUCINOL [Concomitant]
     Active Substance: PHLOROGLUCINOL
     Indication: Product used for unknown indication
     Dosage: UNK
     Route: 065
     Dates: start: 202207
  13. ESOMEPRAZOLE [Concomitant]
     Active Substance: ESOMEPRAZOLE
     Indication: Product used for unknown indication
     Dosage: UNK
     Route: 065
     Dates: start: 202208
  14. AMLODIPINE [Concomitant]
     Active Substance: AMLODIPINE BESYLATE
     Indication: Product used for unknown indication
     Dosage: UNK
     Route: 065
     Dates: start: 202208

REACTIONS (5)
  - Hepatotoxicity [Not Recovered/Not Resolved]
  - Dermatitis exfoliative generalised [Recovered/Resolved]
  - Lichenoid keratosis [Unknown]
  - Colitis [Unknown]
  - Diarrhoea [Recovering/Resolving]

NARRATIVE: CASE EVENT DATE: 20220804
